FAERS Safety Report 11440181 (Version 1)
Quarter: 2015Q3

REPORT INFORMATION
  Report Type: Spontaneous
  Country: US (occurrence: US)
  Receive Date: 20150901
  Receipt Date: 20150901
  Transmission Date: 20151125
  Serious: Yes (Other)
  Sender: FDA-Public Use
  Company Number: US-ELI_LILLY_AND_COMPANY-US201507007646

PATIENT

DRUGS (3)
  1. ALIMTA [Suspect]
     Active Substance: PEMETREXED DISODIUM
     Indication: TRANSITIONAL CELL CARCINOMA
     Dosage: UNK, CYCLICAL
     Route: 065
     Dates: start: 20150417
  2. CARBOPLATIN. [Suspect]
     Active Substance: CARBOPLATIN
     Indication: TRANSITIONAL CELL CARCINOMA
     Dosage: UNK, CYCLICAL
     Route: 065
     Dates: start: 20130623, end: 20130811
  3. GEMZAR [Suspect]
     Active Substance: GEMCITABINE HYDROCHLORIDE
     Indication: TRANSITIONAL CELL CARCINOMA
     Dosage: UNK, CYCLICAL
     Route: 065
     Dates: start: 20130623, end: 20130811

REACTIONS (2)
  - Off label use [Unknown]
  - Malignant neoplasm progression [Unknown]
